FAERS Safety Report 6727640-9 (Version None)
Quarter: 2010Q2

REPORT INFORMATION
  Report Type: 
  Country: None (occurrence: None)
  Receive Date: 20100517
  Receipt Date: 20100512
  Transmission Date: 20101027
  Serious: Yes (Life-Threatening, Hospitalization)
  Sender: FDA-Public Use
  Company Number: ES-ASTRAZENECA-2010SE21557

PATIENT
  Age: 27 Year
  Sex: Male

DRUGS (4)
  1. SEROQUEL [Suspect]
     Indication: BIPOLAR DISORDER
     Route: 048
     Dates: end: 20090818
  2. TOPAMAX [Suspect]
     Indication: BIPOLAR DISORDER
     Route: 048
     Dates: start: 20071101, end: 20090818
  3. PERPHENAZINE [Suspect]
     Indication: BIPOLAR DISORDER
     Route: 048
     Dates: start: 20090403, end: 20090818
  4. ABILIFY [Suspect]
     Indication: BIPOLAR DISORDER
     Route: 048
     Dates: end: 20090818

REACTIONS (3)
  - CEREBRAL ISCHAEMIA [None]
  - HYPERTHERMIA MALIGNANT [None]
  - RESPIRATORY FAILURE [None]
